FAERS Safety Report 8809711 (Version 3)
Quarter: 2013Q4

REPORT INFORMATION
  Report Type: Report from Study
  Country: JP (occurrence: JP)
  Receive Date: 20120926
  Receipt Date: 20131101
  Transmission Date: 20140711
  Serious: Yes (Other)
  Sender: FDA-Public Use
  Company Number: JP-VERTEX PHARMACEUTICAL INC.-AE-2012-011364

PATIENT
  Age: 62 Year
  Sex: Male

DRUGS (7)
  1. VX-950 (TELAPREVIR) [Suspect]
     Indication: CHRONIC HEPATITIS C
     Dosage: 2250 MG, QD
     Route: 048
     Dates: start: 20120612, end: 20120901
  2. RIBAVIRIN [Suspect]
     Indication: CHRONIC HEPATITIS C
     Dosage: 800 MG, QD
     Route: 048
     Dates: start: 20120612, end: 20120827
  3. RIBAVIRIN [Suspect]
     Dosage: 400 MG, QD
     Route: 048
     Dates: start: 20120828
  4. PEGINTERFERON ALFA-2B [Suspect]
     Indication: CHRONIC HEPATITIS C
     Dosage: 1.5 ?G/KG, QW
     Route: 058
     Dates: start: 20120612, end: 20120625
  5. PEGINTERFERON ALFA-2B [Suspect]
     Dosage: 0.75 ?G/KG, QW
     Route: 058
     Dates: start: 20120626, end: 20120702
  6. PEGINTERFERON ALFA-2B [Suspect]
     Dosage: 1.5 ?G/KG, QW
     Route: 058
     Dates: start: 20120703
  7. TALION [Concomitant]
     Dosage: 20 MG, QD
     Route: 048
     Dates: start: 20120612, end: 20120901

REACTIONS (4)
  - Loss of consciousness [Recovered/Resolved]
  - Loss of consciousness [Recovered/Resolved]
  - Rash [Recovered/Resolved]
  - Anaemia [Recovered/Resolved]
